FAERS Safety Report 6258305-8 (Version None)
Quarter: 2009Q3

REPORT INFORMATION
  Report Type: 
  Country: None (occurrence: None)
  Receive Date: 20090702
  Receipt Date: 20090702
  Transmission Date: 20100115
  Serious: Yes (Other)
  Sender: FDA-Public Use
  Company Number: None

PATIENT
  Age: 6 Year
  Sex: Male
  Weight: 23.587 kg

DRUGS (2)
  1. ZYRTEC [Suspect]
     Indication: SEASONAL ALLERGY
     Dosage: 5 ML DAILY PO
     Route: 048
     Dates: start: 20090501, end: 20090531
  2. EQUATE ALLERGY RELIEF 1 MG/ML TARO PHARMACEUTICAL [Suspect]
     Indication: SEASONAL ALLERGY
     Dosage: 5 ML DAILY PO
     Route: 048
     Dates: start: 20090601, end: 20090630

REACTIONS (1)
  - PRURITUS GENERALISED [None]
